FAERS Safety Report 8355484-3 (Version None)
Quarter: 2012Q2

REPORT INFORMATION
  Report Type: 
  Country: None (occurrence: None)
  Receive Date: 20120512
  Receipt Date: 20120501
  Transmission Date: 20120825
  Serious: Yes (Other)
  Sender: FDA-Public Use
  Company Number: US-ELI_LILLY_AND_COMPANY-US201111008465

PATIENT
  Sex: Female

DRUGS (5)
  1. FORTEO [Suspect]
     Dosage: 20 UG, QD
     Route: 065
  2. HYDROCODONE BITARTRATE [Concomitant]
     Indication: BACK PAIN
  3. CORTISONE ACETATE [Concomitant]
     Dosage: UNK
  4. FORTEO [Suspect]
     Indication: OSTEOPOROSIS
     Dosage: 20 UG, QD
     Route: 065
  5. TRAMADOL HYDROCHLORIDE [Concomitant]
     Dosage: UNK

REACTIONS (6)
  - CONSTIPATION [None]
  - MOUTH ULCERATION [None]
  - VISUAL IMPAIRMENT [None]
  - GAIT DISTURBANCE [None]
  - PNEUMONIA [None]
  - EYE HAEMORRHAGE [None]
